FAERS Safety Report 4684247-5 (Version None)
Quarter: 2005Q2

REPORT INFORMATION
  Report Type: 
  Country: None (occurrence: None)
  Receive Date: 20050531
  Receipt Date: 20041012
  Transmission Date: 20051028
  Serious: Yes (Hospitalization, Other)
  Sender: FDA-Public Use
  Company Number: USA041080623

PATIENT
  Age: 12 Year
  Sex: Male

DRUGS (4)
  1. ZYPREXA [Suspect]
     Dosage: 5 MG AT BEDTIME
     Dates: start: 20020507
  2. PROZAC [Suspect]
     Dosage: 20 MG
  3. ADDERALL XR 15 [Concomitant]
  4. TENEX [Concomitant]

REACTIONS (1)
  - PANCREATITIS [None]
